FAERS Safety Report 9072373 (Version 2)
Quarter: 2013Q1

REPORT INFORMATION
  Report Type: Spontaneous
  Country: US (occurrence: US)
  Receive Date: 20130207
  Receipt Date: 20130318
  Transmission Date: 20140127
  Serious: No
  Sender: FDA-Public Use
  Company Number: US-PFIZER INC-2013051182

PATIENT
  Age: 54 Year
  Sex: Female
  Weight: 67.12 kg

DRUGS (5)
  1. CELEBREX [Suspect]
     Indication: ARTHROPATHY
     Dosage: 200 MG, 2X/DAY
     Dates: end: 2012
  2. CELEBREX [Suspect]
     Indication: PLANTAR FASCIITIS
  3. MOBIC [Suspect]
     Indication: ARTHROPATHY
     Dosage: UNK
  4. MOBIC [Suspect]
     Indication: PLANTAR FASCIITIS
  5. MIRAPEX [Concomitant]
     Indication: RESTLESS LEGS SYNDROME
     Dosage: 0.5 MG, 2X/DAY

REACTIONS (4)
  - Arthropathy [Unknown]
  - Feeling abnormal [Unknown]
  - Diarrhoea [Unknown]
  - Abdominal pain upper [Unknown]
